FAERS Safety Report 4613472-4 (Version None)
Quarter: 2005Q1

REPORT INFORMATION
  Report Type: 
  Country: None (occurrence: None)
  Receive Date: 20050321
  Receipt Date: 20050308
  Transmission Date: 20050727
  Serious: Yes (Other)
  Sender: FDA-Public Use
  Company Number: DE-BRISTOL-MYERS SQUIBB COMPANY-12892063

PATIENT
  Age: 57 Year
  Sex: Male
  Weight: 63 kg

DRUGS (1)
  1. TAXOL [Suspect]
     Indication: NON-SMALL CELL LUNG CANCER
     Route: 042
     Dates: start: 20050303, end: 20050303

REACTIONS (3)
  - CYANOSIS [None]
  - MUSCLE SPASMS [None]
  - RESPIRATORY ARREST [None]
